FAERS Safety Report 8597383-8 (Version None)
Quarter: 2012Q3

REPORT INFORMATION
  Report Type: 
  Country: None (occurrence: None)
  Receive Date: 20120801
  Receipt Date: 20120717
  Transmission Date: 20120928
  Serious: Yes (Death, Hospitalization)
  Sender: FDA-Public Use
  Company Number: TPA2012A03142

PATIENT
  Age: 83 Year
  Sex: Male

DRUGS (6)
  1. NORVASC [Concomitant]
  2. FUROSEMIDE [Concomitant]
  3. ADENURIC (FEBUXOSTAT) [Suspect]
     Indication: HYPERURICAEMIA
     Dosage: 80 MG (80 MG, 1 IN 1 D), ORAL
     Route: 048
     Dates: start: 20111001, end: 20120101
  4. METOPROLOL TARTRATE [Concomitant]
  5. MARCUMAR [Suspect]
     Indication: ATRIAL FIBRILLATION
     Dosage: TARGET INR 2-3
     Dates: end: 20120101
  6. DIGITOXIN TAB [Suspect]
     Dosage: 0.07 MG (0.07 MG, 1 IN 1 D)
     Dates: start: 20120201, end: 20120101

REACTIONS (9)
  - TOXICITY TO VARIOUS AGENTS [None]
  - HYPOTENSION [None]
  - ASCITES [None]
  - SYNCOPE [None]
  - CONVULSION [None]
  - HYPERURICAEMIA [None]
  - HEPATIC CIRRHOSIS [None]
  - ASTHENIA [None]
  - ACUTE HEPATIC FAILURE [None]
